FAERS Safety Report 10386193 (Version 2)
Quarter: 2014Q3

REPORT INFORMATION
  Report Type: Spontaneous
  Country: JP (occurrence: JP)
  Receive Date: 20140814
  Receipt Date: 20140822
  Transmission Date: 20150326
  Serious: Yes (Other)
  Sender: FDA-Public Use
  Company Number: JP-BAXTER-2014BAX047313

PATIENT
  Age: 72 Year
  Sex: Male

DRUGS (4)
  1. SUPRANE [Suspect]
     Active Substance: DESFLURANE
     Dosage: 3-4%, TOTAL FLOW RATE 1L
     Route: 055
  2. SUPRANE [Suspect]
     Active Substance: DESFLURANE
     Indication: SPINAL DECOMPRESSION
     Dosage: 3-4%, TOTAL FLOW RATE 1L
     Route: 055
  3. REMIFENTANIL HYDROCHLORIDE [Suspect]
     Active Substance: REMIFENTANIL HYDROCHLORIDE
     Indication: MAINTENANCE OF ANAESTHESIA
     Route: 065
  4. ATROPINE [Concomitant]
     Active Substance: ATROPINE
     Indication: HEART RATE DECREASED
     Route: 065

REACTIONS (1)
  - Bradycardia [Recovered/Resolved]
